FAERS Safety Report 20113629 (Version 1)
Quarter: 2021Q4

REPORT INFORMATION
  Report Type: Spontaneous
  Country: US (occurrence: US)
  Receive Date: 20211125
  Receipt Date: 20211125
  Transmission Date: 20220303
  Serious: Yes (Death, Hospitalization, Other)
  Sender: FDA-Public Use
  Company Number: US-TEVA-2021-US-1980789

PATIENT
  Age: 25 Year
  Sex: Male

DRUGS (3)
  1. CLOZAPINE [Suspect]
     Active Substance: CLOZAPINE
     Indication: Suicidal behaviour
     Dosage: 300 MILLIGRAM DAILY; AT BEDTIME
     Route: 065
  2. RISPERIDONE [Suspect]
     Active Substance: RISPERIDONE
     Indication: Schizophrenia
     Route: 065
  3. BUPROPION [Suspect]
     Active Substance: BUPROPION
     Indication: Schizophrenia
     Route: 065

REACTIONS (5)
  - Completed suicide [Fatal]
  - Rebound effect [Fatal]
  - Suicide attempt [Unknown]
  - Intentional overdose [Unknown]
  - Drug ineffective [Unknown]
